FAERS Safety Report 6366739-6 (Version None)
Quarter: 2009Q3

REPORT INFORMATION
  Report Type: 
  Country: None (occurrence: None)
  Receive Date: 20090915
  Receipt Date: 20090903
  Transmission Date: 20100115
  Serious: Yes (Other)
  Sender: FDA-Public Use
  Company Number: ERP09000034

PATIENT
  Sex: Female

DRUGS (4)
  1. DIDRONATE + CALCIUM (ETIDRONATE DISODIUM/CALCIUM CARBONATE CYCLICAL) T [Suspect]
     Indication: OSTEOPOROSIS
     Dosage: 400 MG, CYCLIC 1/D, ORAL
     Route: 048
     Dates: start: 19970101, end: 20090401
  2. ACETYLSALICYLIC ACID SRT [Concomitant]
  3. CALCICHEW D3 (CALCIUM CARBONATE COLECALCIFEROL) [Concomitant]
  4. TRIOBE (CYANOCOBALAMIN, FOLIC ACID, PYRIDOXINE HYDROCHLORIDE) [Concomitant]

REACTIONS (3)
  - OSTEONECROSIS [None]
  - SINUS DISORDER [None]
  - SINUS HEADACHE [None]
